FAERS Safety Report 7167740-5 (Version None)
Quarter: 2010Q4

REPORT INFORMATION
  Report Type: 
  Country: None (occurrence: None)
  Receive Date: 20101216
  Receipt Date: 20101108
  Transmission Date: 20110411
  Serious: No
  Sender: FDA-Public Use
  Company Number: A0883193A

PATIENT
  Age: 59 Year
  Sex: Female
  Weight: 52.7 kg

DRUGS (6)
  1. NICOTINE POLACRILEX [Suspect]
     Indication: SMOKING CESSATION THERAPY
  2. NICORETTE [Suspect]
     Indication: SMOKING CESSATION THERAPY
  3. MELOXICAM [Concomitant]
     Indication: PAIN
     Route: 048
  4. GABAPENTIN [Concomitant]
     Indication: FIBROMYALGIA
     Dosage: 100MG TWICE PER DAY
     Route: 048
  5. TRAMADOL HCL [Concomitant]
     Indication: FIBROMYALGIA
     Dosage: 50MG TWICE PER DAY
     Route: 048
  6. CYCLOBENZAPRINE [Concomitant]
     Indication: FIBROMYALGIA
     Dosage: 10MG TWICE PER DAY
     Route: 048

REACTIONS (4)
  - DRUG INEFFECTIVE [None]
  - INTENTIONAL DRUG MISUSE [None]
  - NICOTINE DEPENDENCE [None]
  - TREMOR [None]
